FAERS Safety Report 7509187-5 (Version None)
Quarter: 2011Q2

REPORT INFORMATION
  Report Type: 
  Country: None (occurrence: None)
  Receive Date: 20110519
  Receipt Date: 20110504
  Transmission Date: 20111010
  Serious: Yes (Hospitalization)
  Sender: FDA-Public Use
  Company Number: AUR-APL-2011-01645

PATIENT
  Age: 6 Hour
  Sex: Male
  Weight: 3.38 kg

DRUGS (2)
  1. FLUOXETINE HCL [Suspect]
     Indication: DEPRESSION
     Dosage: 20MG-QD-TRANSPLACENTAL; 2ND/3RD TRIMESTER-30WKS
     Route: 064
  2. FLUOXETINE HCL [Suspect]
     Indication: DEPRESSION
     Dosage: 40MG-QD-TRANSPLACENTAL

REACTIONS (5)
  - CONGENITAL FLOPPY INFANT [None]
  - APGAR SCORE LOW [None]
  - CONGENITAL CENTRAL NERVOUS SYSTEM ANOMALY [None]
  - FORCEPS DELIVERY [None]
  - MATERNAL DRUGS AFFECTING FOETUS [None]
